FAERS Safety Report 6840773-1 (Version None)
Quarter: 2010Q3

REPORT INFORMATION
  Report Type: 
  Country: None (occurrence: None)
  Receive Date: 20100714
  Receipt Date: 20070119
  Transmission Date: 20110219
  Serious: No
  Sender: FDA-Public Use
  Company Number: US-PFIZER INC-2006094793

PATIENT
  Sex: Female
  Weight: 57.15 kg

DRUGS (1)
  1. CHANTIX [Suspect]
     Indication: SMOKING CESSATION THERAPY
     Route: 048
     Dates: start: 20060717, end: 20060730

REACTIONS (5)
  - ABNORMAL DREAMS [None]
  - CRYING [None]
  - DEREALISATION [None]
  - FEELINGS OF WORTHLESSNESS [None]
  - POOR QUALITY SLEEP [None]
